FAERS Safety Report 11702465 (Version 1)
Quarter: 2015Q4

REPORT INFORMATION
  Report Type: Report from Study
  Country: PK (occurrence: PK)
  Receive Date: 20151105
  Receipt Date: 20151105
  Transmission Date: 20160304
  Serious: Yes (Death)
  Sender: FDA-Public Use
  Company Number: PK-KADMON PHARMACEUTICALS, LLC-KAD201407-000740

PATIENT

DRUGS (2)
  1. RIBAVIRIN. [Suspect]
     Active Substance: RIBAVIRIN
     Indication: CONGO-CRIMEAN HAEMORRHAGIC FEVER
     Route: 048
  2. RIBAVIRIN. [Suspect]
     Active Substance: RIBAVIRIN
     Route: 048

REACTIONS (2)
  - Product use issue [Unknown]
  - Death [Fatal]
